FAERS Safety Report 5511009-9 (Version None)
Quarter: 2007Q4

REPORT INFORMATION
  Report Type: 
  Country: None (occurrence: None)
  Receive Date: 20071109
  Receipt Date: 20070928
  Transmission Date: 20080405
  Serious: Yes (Hospitalization)
  Sender: FDA-Public Use
  Company Number: DE-SHR-DE-2007-027055

PATIENT
  Age: 29 Year
  Sex: Female
  Weight: 43 kg

DRUGS (5)
  1. BETASERON [Suspect]
     Dosage: .25 ML, UNK
     Route: 058
     Dates: start: 20070701
  2. BETASERON [Suspect]
     Dosage: .5 ML, UNK
     Route: 058
     Dates: start: 20070705
  3. BETASERON [Suspect]
     Dosage: .75 ML, UNK
     Route: 058
     Dates: start: 20070709
  4. BETASERON [Suspect]
     Dosage: 1 ML, UNK
     Route: 058
     Dates: start: 20070713
  5. MICROGYNON 30 (21) [Concomitant]
     Indication: ORAL CONTRACEPTION
     Dosage: 1 TAB(S), UNK
     Route: 048
     Dates: start: 19930101

REACTIONS (3)
  - DIZZINESS [None]
  - RESTLESSNESS [None]
  - VISUAL DISTURBANCE [None]
